FAERS Safety Report 6327346-4 (Version None)
Quarter: 2009Q3

REPORT INFORMATION
  Report Type: 
  Country: None (occurrence: None)
  Receive Date: 20090825
  Receipt Date: 20090817
  Transmission Date: 20100115
  Serious: Yes (Hospitalization)
  Sender: FDA-Public Use
  Company Number: US-BRISTOL-MYERS SQUIBB COMPANY-14750509

PATIENT
  Age: 46 Year
  Sex: Male

DRUGS (4)
  1. ARIPIPRAZOLE [Suspect]
     Route: 048
  2. RISPERIDONE [Suspect]
     Dosage: TITRATED UP TO 3 MG TWICE DAILY
     Route: 048
  3. QUETIAPINE [Suspect]
     Dosage: 200 MG ORALLY MORNING AND 800 MG NIGHTLY WAS DECREASED TO 200 MG NIGHTLY
     Route: 048
  4. ZIPRASIDONE HCL [Suspect]
     Route: 048

REACTIONS (1)
  - INAPPROPRIATE ANTIDIURETIC HORMONE SECRETION [None]
